FAERS Safety Report 9300388 (Version 2)
Quarter: 2013Q2

REPORT INFORMATION
  Report Type: Spontaneous
  Country: AU (occurrence: AU)
  Receive Date: 20130521
  Receipt Date: 20130617
  Transmission Date: 20140414
  Serious: Yes (Hospitalization)
  Sender: FDA-Public Use
  Company Number: AU-AMGEN-AUSSP2013029945

PATIENT
  Age: 86 Year
  Sex: Male
  Weight: 87 kg

DRUGS (12)
  1. XGEVA [Suspect]
     Indication: PROSTATE CANCER METASTATIC
     Dosage: 120 MG, UNK,6/12
     Route: 058
     Dates: start: 20130308, end: 20130308
  2. CALCIUM [Concomitant]
     Dosage: UNK
     Route: 042
     Dates: start: 20130308
  3. VITAMIN D                          /00107901/ [Concomitant]
     Indication: VITAMIN D DEFICIENCY
  4. ESOMEPRAZOLE [Concomitant]
  5. THYROXINE [Concomitant]
     Indication: HYPOTHYROIDISM
     Dosage: 50 MUG, UNK
     Route: 048
  6. NILUTAMIDE [Concomitant]
     Indication: PROSTATE CANCER METASTATIC
     Dosage: 150 MG, UNK
     Route: 048
  7. ZOLADEX                            /00732101/ [Concomitant]
     Indication: PROSTATE CANCER METASTATIC
     Dosage: 10.8 MG, Q3MO
     Route: 058
  8. EZETIMIBE [Concomitant]
  9. GLICLAZIDE [Concomitant]
  10. WARFARIN [Concomitant]
  11. SERACTIL [Concomitant]
  12. VENTOLIN                           /00139501/ [Concomitant]

REACTIONS (1)
  - Hypocalcaemia [Not Recovered/Not Resolved]
